FAERS Safety Report 25597697 (Version 1)
Quarter: 2025Q3

REPORT INFORMATION
  Report Type: Report from Study
  Country: US (occurrence: US)
  Receive Date: 20250723
  Receipt Date: 20250723
  Transmission Date: 20251021
  Serious: Yes (Death)
  Sender: ABBVIE
  Company Number: US-ABBVIE-6383787

PATIENT
  Age: 68 Year
  Sex: Female

DRUGS (8)
  1. SYNTHROID [Suspect]
     Active Substance: LEVOTHYROXINE SODIUM
     Indication: Product used for unknown indication
     Dosage: TOOK 4 DAYS OF 50 MCG SYNTHROID, LAST ADMIN DATE-2025
     Route: 048
     Dates: start: 20250202
  2. SYNTHROID [Suspect]
     Active Substance: LEVOTHYROXINE SODIUM
     Indication: Product used for unknown indication
     Dosage: TOOK 3 DAYS OF 75 MCG SYNTHROID, LAST ADMIN DATE-2025
     Route: 048
     Dates: start: 20250202
  3. SYNTHROID [Suspect]
     Active Substance: LEVOTHYROXINE SODIUM
     Indication: Product used for unknown indication
     Dosage: TOOK 4 DAYS OF 50 MCG SYNTHROID, LAST ADMIN DATE-2025
     Route: 048
     Dates: start: 2025, end: 20250430
  4. VITAMIN C [Concomitant]
     Active Substance: ASCORBIC ACID
     Indication: Product used for unknown indication
     Dates: start: 20250206, end: 20250430
  5. VITAMIN D [Concomitant]
     Active Substance: VITAMIN D NOS
     Indication: Product used for unknown indication
     Dates: start: 20250206, end: 20250430
  6. POTASSIUM CHLORIDE [Concomitant]
     Active Substance: POTASSIUM CHLORIDE
     Indication: Product used for unknown indication
     Dates: start: 20250206
  7. OMEPRAZOLE [Concomitant]
     Active Substance: OMEPRAZOLE
     Indication: Product used for unknown indication
     Dates: start: 20250206, end: 20250430
  8. ELIQUIS [Concomitant]
     Active Substance: APIXABAN
     Indication: Product used for unknown indication
     Dates: start: 20250206, end: 20250430

REACTIONS (1)
  - Death [Fatal]

NARRATIVE: CASE EVENT DATE: 20250430
